FAERS Safety Report 24725352 (Version 3)
Quarter: 2025Q1

REPORT INFORMATION
  Report Type: Spontaneous
  Country: IT (occurrence: IT)
  Receive Date: 20241212
  Receipt Date: 20250326
  Transmission Date: 20250409
  Serious: Yes (Other)
  Sender: AUROBINDO
  Company Number: IT-BRISTOL-MYERS SQUIBB COMPANY-2024-180924

PATIENT
  Age: 56 Year
  Sex: Male

DRUGS (1)
  1. LENALIDOMIDE [Suspect]
     Active Substance: LENALIDOMIDE
     Indication: Plasma cell myeloma
     Route: 065

REACTIONS (7)
  - Diarrhoea haemorrhagic [Unknown]
  - Severe acute respiratory syndrome [Recovered/Resolved]
  - Graft versus host disease [Unknown]
  - Asthenia [Not Recovered/Not Resolved]
  - Bronchitis [Unknown]
  - Tongue disorder [Unknown]
  - Skin lesion [Recovered/Resolved]

NARRATIVE: CASE EVENT DATE: 20221121
